FAERS Safety Report 5322908-5 (Version None)
Quarter: 2007Q2

REPORT INFORMATION
  Report Type: 
  Country: None (occurrence: None)
  Receive Date: 20070221
  Receipt Date: 20060217
  Transmission Date: 20071010
  Serious: No
  Sender: FDA-Public Use
  Company Number: EM2006-0116

PATIENT
  Sex: Female

DRUGS (1)
  1. TOBI [Suspect]
     Indication: PSEUDOMONAS INFECTION
     Dosage: 300 MG, Q12H
     Dates: start: 20060216

REACTIONS (3)
  - BRONCHOSPASM [None]
  - COUGH [None]
  - THROAT TIGHTNESS [None]
